FAERS Safety Report 14892476 (Version 1)
Quarter: 2018Q2

REPORT INFORMATION
  Report Type: Report from Study
  Country: TH (occurrence: TH)
  Receive Date: 20180514
  Receipt Date: 20180514
  Transmission Date: 20180711
  Serious: Yes (Hospitalization, Other)
  Sender: FDA-Public Use
  Company Number: TH-VIIV HEALTHCARE LIMITED-TH2018GSK082983

PATIENT
  Age: 38 Year
  Sex: Female
  Weight: 45.2 kg

DRUGS (6)
  1. TENOFOVIR DISOPROXIL FUMARATE. [Suspect]
     Active Substance: TENOFOVIR DISOPROXIL FUMARATE
     Indication: ANTIRETROVIRAL THERAPY
  2. ABACAVIR SULPHATE [Suspect]
     Active Substance: ABACAVIR
     Indication: ACUTE HIV INFECTION
     Dosage: UNK
     Dates: start: 20170404, end: 20180322
  3. LAMIVUDINE. [Suspect]
     Active Substance: LAMIVUDINE
     Indication: ACUTE HIV INFECTION
     Dosage: UNK
     Dates: start: 20150531
  4. DOLUTEGRAVIR [Suspect]
     Active Substance: DOLUTEGRAVIR
     Indication: ACUTE HIV INFECTION
     Dosage: UNK
     Dates: start: 20170425, end: 20180322
  5. RITONAVIR. [Concomitant]
     Active Substance: RITONAVIR
     Indication: ANTIRETROVIRAL THERAPY
  6. LOPINAVIR [Concomitant]
     Active Substance: LOPINAVIR
     Indication: ANTIRETROVIRAL THERAPY

REACTIONS (2)
  - Abortion spontaneous [Recovered/Resolved]
  - Exposure during pregnancy [Unknown]

NARRATIVE: CASE EVENT DATE: 20180414
